FAERS Safety Report 12655553 (Version 1)
Quarter: 2016Q3

REPORT INFORMATION
  Report Type: Spontaneous
  Country: US (occurrence: US)
  Receive Date: 20160816
  Receipt Date: 20160816
  Transmission Date: 20161109
  Serious: No
  Sender: FDA-Public Use
  Company Number: US-LUNDBECK-DKLU2014846

PATIENT
  Sex: Female

DRUGS (2)
  1. NORTHERA [Suspect]
     Active Substance: DROXIDOPA
     Indication: ORTHOSTATIC HYPOTENSION
     Dosage: 200MG AND 300MG EQUAL 500MG DOSE
     Route: 048
     Dates: start: 20150528
  2. NORTHERA [Suspect]
     Active Substance: DROXIDOPA
     Dosage: 200MG PLUS 300MG EQUALS 500MG DOSE
     Route: 048
     Dates: start: 20150528

REACTIONS (2)
  - Nausea [Unknown]
  - Dizziness [Unknown]
